FAERS Safety Report 6527759-1 (Version None)
Quarter: 2010Q1

REPORT INFORMATION
  Report Type: 
  Country: None (occurrence: None)
  Receive Date: 20100106
  Receipt Date: 20091229
  Transmission Date: 20100710
  Serious: Yes (Other)
  Sender: FDA-Public Use
  Company Number: US-RANBAXY-2009RR-26111

PATIENT
  Age: 46 Year
  Sex: Male

DRUGS (2)
  1. CLINDAMYCIN [Suspect]
     Indication: CELLULITIS
     Dosage: 300 MG, QID
     Route: 048
  2. CLINDAMYCIN [Suspect]
     Indication: PROPHYLAXIS
     Dosage: 600 MG, UNK
     Route: 042
     Dates: start: 20071221

REACTIONS (1)
  - HYPERCHOLESTEROLAEMIA [None]
